FAERS Safety Report 5378804-0 (Version None)
Quarter: 2007Q3

REPORT INFORMATION
  Report Type: 
  Country: None (occurrence: None)
  Receive Date: 20070705
  Receipt Date: 20070627
  Transmission Date: 20080115
  Serious: Yes (Other)
  Sender: FDA-Public Use
  Company Number: CA-ASTRAZENECA-2007UW15035

PATIENT
  Age: 34 Year
  Sex: Female

DRUGS (3)
  1. SEROQUEL [Suspect]
     Indication: DEPRESSION
     Dosage: 1200-1400 MG
     Route: 048
     Dates: start: 20070201
  2. SEROQUEL [Suspect]
     Indication: SUBSTANCE ABUSE
     Dosage: 1200-1400 MG
     Route: 048
     Dates: start: 20070201
  3. EFFEXOR XR [Concomitant]
     Indication: MAJOR DEPRESSION
     Route: 048
     Dates: start: 20030101

REACTIONS (1)
  - DRUG ABUSER [None]
